FAERS Safety Report 8920523 (Version 2)
Quarter: 2012Q4

REPORT INFORMATION
  Report Type: 
  Country: US (occurrence: US)
  Receive Date: 20121121
  Receipt Date: 20121226
  Transmission Date: 20130627
  Serious: Yes (Hospitalization, Other)
  Sender: FDA-Public Use
  Company Number: US-ROCHE-1158126

PATIENT
  Age: 51 Year
  Sex: Female
  Weight: 53.57 kg

DRUGS (4)
  1. PEGASYS [Suspect]
     Indication: CHRONIC HEPATITIS C
     Route: 058
     Dates: start: 20120806
  2. RIBAVIRIN [Concomitant]
     Indication: CHRONIC HEPATITIS C
     Dosage: In divided dose 400/600
     Route: 048
     Dates: start: 20120806
  3. RIBAVIRIN [Concomitant]
     Route: 048
  4. RIBAVIRIN [Concomitant]
     Dosage: in divided dose 200/200/200
     Route: 048
     Dates: start: 20120820

REACTIONS (8)
  - Hypotension [Unknown]
  - Anaemia [Unknown]
  - White blood cell count decreased [Unknown]
  - Pain [Unknown]
  - Decreased appetite [Unknown]
  - Weight decreased [Unknown]
  - Road traffic accident [Unknown]
  - Vision blurred [Not Recovered/Not Resolved]
